FAERS Safety Report 12587451 (Version 5)
Quarter: 2016Q4

REPORT INFORMATION
  Report Type: Report from Study
  Country: BR (occurrence: BR)
  Receive Date: 20160725
  Receipt Date: 20161215
  Transmission Date: 20170207
  Serious: Yes (Other)
  Sender: FDA-Public Use
  Company Number: PHHY2016BR100940

PATIENT
  Sex: Female
  Weight: 68 kg

DRUGS (5)
  1. SANDOSTATIN LAR DEPOT [Suspect]
     Active Substance: OCTREOTIDE ACETATE
     Dosage: 10 MG, 2 VIALS
     Route: 030
     Dates: start: 2016
  2. SANDOSTATIN LAR DEPOT [Suspect]
     Active Substance: OCTREOTIDE ACETATE
     Dosage: 30 MG (10 MG AND 20 MG), QMO
     Route: 030
  3. CABERGOLINA [Concomitant]
     Active Substance: CABERGOLINE
     Indication: ACROMEGALY
     Route: 065
  4. SANDOSTATIN LAR DEPOT [Suspect]
     Active Substance: OCTREOTIDE ACETATE
     Indication: ACROMEGALY
     Dosage: 30 MG, UNK
     Route: 030
     Dates: start: 201202
  5. SANDOSTATIN LAR DEPOT [Suspect]
     Active Substance: OCTREOTIDE ACETATE
     Dosage: 30 MG, QMO
     Route: 030
     Dates: start: 20120913

REACTIONS (20)
  - Glucose tolerance impaired [Unknown]
  - Weight decreased [Unknown]
  - Spinal pain [Unknown]
  - Injection site pain [Unknown]
  - Nodule [Unknown]
  - Abasia [Unknown]
  - Spinal osteoarthritis [Unknown]
  - Bone pain [Unknown]
  - Mobility decreased [Unknown]
  - Malaise [Unknown]
  - Pain [Unknown]
  - Back pain [Unknown]
  - Headache [Unknown]
  - Gait disturbance [Unknown]
  - Dizziness [Unknown]
  - Blindness unilateral [Unknown]
  - Spinal disorder [Unknown]
  - Dysstasia [Unknown]
  - Fatigue [Unknown]
  - Dyspnoea [Unknown]
